FAERS Safety Report 20876646 (Version 1)
Quarter: 2022Q2

REPORT INFORMATION
  Report Type: Spontaneous
  Country: US (occurrence: US)
  Receive Date: 20220526
  Receipt Date: 20220526
  Transmission Date: 20220721
  Serious: No
  Sender: FDA-Public Use
  Company Number: US-GLAXOSMITHKLINE-USCH2022018113

PATIENT
  Age: 83 Year
  Sex: Female
  Weight: 54.422 kg

DRUGS (2)
  1. ADVIL [Suspect]
     Active Substance: IBUPROFEN
     Indication: Herpes zoster
     Dosage: 3 DF, QD
     Dates: start: 20220412, end: 202205
  2. ADVIL [Suspect]
     Active Substance: IBUPROFEN
     Indication: Pain
     Dosage: 1 DF, BID
     Dates: start: 20220505

REACTIONS (3)
  - Therapeutic response unexpected [Unknown]
  - Product use in unapproved indication [Unknown]
  - Drug effective for unapproved indication [Unknown]
